FAERS Safety Report 5806439-1 (Version None)
Quarter: 2008Q3

REPORT INFORMATION
  Report Type: 
  Country: None (occurrence: None)
  Receive Date: 20080710
  Receipt Date: 20080630
  Transmission Date: 20090109
  Serious: Yes (Hospitalization, Other)
  Sender: FDA-Public Use
  Company Number: US-PFIZER INC-2008044308

PATIENT
  Sex: Female
  Weight: 72.727 kg

DRUGS (3)
  1. TIKOSYN [Suspect]
     Indication: PALPITATIONS
     Route: 048
     Dates: start: 20071001, end: 20080501
  2. TIKOSYN [Suspect]
     Indication: ATRIAL FIBRILLATION
  3. SPIRONOLACTONE [Concomitant]

REACTIONS (5)
  - DYSPNOEA [None]
  - HYPOTENSION [None]
  - PAIN IN EXTREMITY [None]
  - PALPITATIONS [None]
  - VERTIGO [None]
